FAERS Safety Report 6124742-5 (Version None)
Quarter: 2009Q1

REPORT INFORMATION
  Report Type: 
  Country: None (occurrence: None)
  Receive Date: 20090319
  Receipt Date: 20090316
  Transmission Date: 20090719
  Serious: Yes (Hospitalization)
  Sender: FDA-Public Use
  Company Number: US-KINGPHARMUSA00001-K200900291

PATIENT
  Age: 66 Year
  Sex: Female

DRUGS (3)
  1. ALTACE [Suspect]
     Indication: HYPERTENSION
     Dosage: 2.5 MG, QD
     Route: 048
  2. METOHEXAL                          /00376902/ [Suspect]
     Indication: HYPERTENSION
     Dosage: 47.5 MG, BID
     Route: 048
     Dates: end: 20090206
  3. NAPOXEN                            /00256201/ [Concomitant]
     Indication: OSTEOARTHRITIS
     Dosage: 500 MG, UNK
     Route: 048

REACTIONS (6)
  - BRADYCARDIA [None]
  - PULMONARY EMBOLISM [None]
  - RESPIRATORY FAILURE [None]
  - SICK SINUS SYNDROME [None]
  - SINOATRIAL BLOCK [None]
  - SYNCOPE [None]
